FAERS Safety Report 20713865 (Version 1)
Quarter: 2022Q2

REPORT INFORMATION
  Report Type: Spontaneous
  Country: US (occurrence: None)
  Receive Date: 20220414
  Receipt Date: 20220414
  Transmission Date: 20220721
  Serious: Yes (Disabling, Other)
  Sender: FDA-Public Use
  Company Number: None

PATIENT
  Age: 67 Year
  Sex: Female
  Weight: 59.85 kg

DRUGS (18)
  1. BEVACIZUMAB [Suspect]
     Active Substance: BEVACIZUMAB
     Indication: Ovarian cancer metastatic
     Dosage: OTHER FREQUENCY : ONCE EVERY 4 WEEKS;?OTHER ROUTE : PORT;?
     Route: 050
     Dates: start: 20220111
  2. MACROBID [Concomitant]
     Active Substance: NITROFURANTOIN\NITROFURANTOIN MONOHYDRATE
  3. GABAPENTIN [Concomitant]
     Active Substance: GABAPENTIN
  4. FAMOTADINE [Concomitant]
  5. B12 SUBLINGUAL [Concomitant]
  6. METOPROLOL [Concomitant]
     Active Substance: METOPROLOL
  7. TRAMADOL [Concomitant]
     Active Substance: TRAMADOL
  8. CLONAZEPAM [Concomitant]
     Active Substance: CLONAZEPAM
  9. IBUPROFEN [Concomitant]
     Active Substance: IBUPROFEN
  10. DIPHENHYDRAMINE HYDROCHLORIDE\LIDOCAINE HYDROCHLORIDE\NYSTATIN [Concomitant]
     Active Substance: DIPHENHYDRAMINE HYDROCHLORIDE\LIDOCAINE HYDROCHLORIDE\NYSTATIN
  11. ONDANSETRON [Concomitant]
     Active Substance: ONDANSETRON
  12. FOLIC ACID [Concomitant]
     Active Substance: FOLIC ACID
  13. VITAMIN D3 [Concomitant]
     Active Substance: CHOLECALCIFEROL
  14. COENZYME Q10 [Concomitant]
     Active Substance: DIETARY SUPPLEMENT\UBIDECARENONE
  15. GAS-X [Concomitant]
     Active Substance: DIMETHICONE
  16. MAGNESIUM [Concomitant]
     Active Substance: MAGNESIUM
  17. ALPHA LIPOIC ACID [Concomitant]
     Active Substance: .ALPHA.-LIPOIC ACID
  18. MIRALAX [Concomitant]
     Active Substance: POLYETHYLENE GLYCOL 3350

REACTIONS (10)
  - Dyspnoea [None]
  - Myalgia [None]
  - Arthralgia [None]
  - Tachycardia [None]
  - Ejection fraction decreased [None]
  - Depressed level of consciousness [None]
  - Muscular weakness [None]
  - Oropharyngeal pain [None]
  - Migraine [None]
  - Vision blurred [None]

NARRATIVE: CASE EVENT DATE: 20220315
